FAERS Safety Report 13824903 (Version 1)
Quarter: 2017Q3

REPORT INFORMATION
  Report Type: Spontaneous
  Country: US (occurrence: US)
  Receive Date: 20170802
  Receipt Date: 20170802
  Transmission Date: 20171127
  Serious: Yes (Life-Threatening)
  Sender: FDA-Public Use
  Company Number: None

PATIENT
  Age: 62 Year
  Sex: Male
  Weight: 99.88 kg

DRUGS (9)
  1. METFORMIN [Concomitant]
     Active Substance: METFORMIN HYDROCHLORIDE
  2. VALSARTIN [Concomitant]
  3. CARVEDIOL [Concomitant]
     Active Substance: CARVEDILOL
  4. VASEPA [Concomitant]
  5. CHLORATHALIDONE [Suspect]
     Active Substance: CHLORTHALIDONE
     Indication: FLUID RETENTION
     Dosage: ?          QUANTITY:/7L/L?//?V(.;?
     Route: 048
     Dates: start: 20160101, end: 20170509
  6. GIPIZIDE [Concomitant]
  7. CHLORATHALIDONE [Suspect]
     Active Substance: CHLORTHALIDONE
     Indication: JOINT SWELLING
     Dosage: ?          QUANTITY:/7L/L?//?V(.;?
     Route: 048
     Dates: start: 20160101, end: 20170509
  8. ARIPIPRAZOLE. [Concomitant]
     Active Substance: ARIPIPRAZOLE
  9. SIMVASTATIN. [Concomitant]
     Active Substance: SIMVASTATIN

REACTIONS (2)
  - Feeling abnormal [None]
  - Malaise [None]

NARRATIVE: CASE EVENT DATE: 20170509
